FAERS Safety Report 5766566-4 (Version None)
Quarter: 2008Q2

REPORT INFORMATION
  Report Type: 
  Country: None (occurrence: None)
  Receive Date: 20080611
  Receipt Date: 20080611
  Transmission Date: 20081010
  Serious: Yes (Life-Threatening, Hospitalization)
  Sender: FDA-Public Use
  Company Number: None

PATIENT
  Age: 33 Year
  Sex: Male
  Weight: 101 kg

DRUGS (2)
  1. THYMOGLOBULIN [Suspect]
     Indication: IMMUNOSUPPRESSANT DRUG THERAPY
     Dosage: 150 MG ONE TIME DOSE IV BOLUS
     Route: 040
     Dates: start: 20080525, end: 20080525
  2. THYMOGLOBULIN [Suspect]
     Indication: RENAL TRANSPLANT
     Dosage: 150 MG ONE TIME DOSE IV BOLUS
     Route: 040
     Dates: start: 20080525, end: 20080525

REACTIONS (2)
  - PNEUMONIA [None]
  - PULMONARY OEDEMA [None]
